FAERS Safety Report 8403700-1 (Version None)
Quarter: 2012Q2

REPORT INFORMATION
  Report Type: 
  Country: None (occurrence: None)
  Receive Date: 20120601
  Receipt Date: 20110811
  Transmission Date: 20120825
  Serious: No
  Sender: FDA-Public Use
  Company Number: US-NOVEN-11US002955

PATIENT
  Sex: Male
  Weight: 54.422 kg

DRUGS (3)
  1. RISPERDAL [Concomitant]
     Indication: BIPOLAR DISORDER
     Dosage: 0.5 MG, BID
     Route: 048
  2. SEROQUEL [Concomitant]
     Dosage: 25 MG, QD
     Route: 048
  3. DAYTRANA [Suspect]
     Dosage: 15 MG, QD
     Route: 062
     Dates: start: 20110701

REACTIONS (2)
  - WEIGHT DECREASED [None]
  - APPLICATION SITE ERYTHEMA [None]
